FAERS Safety Report 9279219 (Version 2)
Quarter: 2013Q4

REPORT INFORMATION
  Report Type: Spontaneous
  Country: US (occurrence: US)
  Receive Date: 20130508
  Receipt Date: 20131223
  Transmission Date: 20140711
  Serious: Yes (Other)
  Sender: FDA-Public Use
  Company Number: CHPA2013US007712

PATIENT
  Sex: Female

DRUGS (2)
  1. EXCEDRIN EXTRA STRENGTH [Suspect]
     Indication: MIGRAINE
     Dosage: 1/4 OR 1/2 PILL WITH LOTS OF WATER, AS NEEDED
     Route: 048
  2. EXCEDRIN EXTRA STRENGTH [Suspect]
     Indication: OFF LABEL USE
     Dosage: WHOLE TABLETS TAKEN WITH JUICE
     Route: 048

REACTIONS (2)
  - Ulcer [Recovered/Resolved]
  - Underdose [Unknown]
